FAERS Safety Report 5110226-X (Version None)
Quarter: 2006Q3

REPORT INFORMATION
  Report Type: 
  Country: None (occurrence: None)
  Receive Date: 20060921
  Receipt Date: 20060802
  Transmission Date: 20061208
  Serious: Yes (Hospitalization)
  Sender: FDA-Public Use
  Company Number: US-ROCHE-458260

PATIENT
  Age: 66 Year
  Sex: Female

DRUGS (3)
  1. BONIVA [Suspect]
     Indication: DRUG USE FOR UNKNOWN INDICATION
     Dosage: FREQUENCY REPORTED AS MONTHLY
     Route: 048
     Dates: start: 20060201
  2. BONIVA [Suspect]
     Route: 048
     Dates: start: 20060401, end: 20060401
  3. THYROID TAB [Concomitant]
     Dosage: REPORTED AS THYROID MEDICATION

REACTIONS (9)
  - BONE PAIN [None]
  - DYSPNOEA [None]
  - HEART RATE INCREASED [None]
  - MOVEMENT DISORDER [None]
  - MYALGIA [None]
  - NON-CARDIAC CHEST PAIN [None]
  - PAIN [None]
  - PAIN IN EXTREMITY [None]
  - SWELLING [None]
